FAERS Safety Report 7311363-1 (Version None)
Quarter: 2011Q1

REPORT INFORMATION
  Report Type: 
  Country: None (occurrence: None)
  Receive Date: 20110224
  Receipt Date: 20110214
  Transmission Date: 20110831
  Serious: Yes (Hospitalization, Other)
  Sender: FDA-Public Use
  Company Number: US-JNJFOC-20110204408

PATIENT
  Sex: Male
  Weight: 70.31 kg

DRUGS (5)
  1. HUMIRA [Suspect]
     Indication: CROHN'S DISEASE
     Dosage: LOADING DOSE ONLY
  2. REMICADE [Suspect]
     Indication: PRODUCT USED FOR UNKNOWN INDICATION
     Route: 042
  3. PREDNISONE [Concomitant]
  4. TRAMADOL HCL [Concomitant]
  5. MULTI-VITAMINS [Concomitant]

REACTIONS (7)
  - ASTHENIA [None]
  - VOMITING [None]
  - ABDOMINAL PAIN [None]
  - INCISION SITE PAIN [None]
  - PRESYNCOPE [None]
  - WHITE BLOOD CELL COUNT INCREASED [None]
  - INTESTINAL STENOSIS [None]
